FAERS Safety Report 20741778 (Version 1)
Quarter: 2022Q2

REPORT INFORMATION
  Report Type: Spontaneous
  Country: CO (occurrence: CO)
  Receive Date: 20220423
  Receipt Date: 20220423
  Transmission Date: 20220721
  Serious: Yes (Other)
  Sender: FDA-Public Use
  Company Number: CO-AMGEN-COLSP2022066094

PATIENT
  Age: 49 Year
  Sex: Male
  Weight: 63 kg

DRUGS (9)
  1. MVASI [Suspect]
     Active Substance: BEVACIZUMAB-AWWB
     Indication: Colon cancer
     Dosage: 315 MILLIGRAM, QD
     Route: 042
     Dates: start: 20220129
  2. PEGFILGRASTIM [Suspect]
     Active Substance: PEGFILGRASTIM
     Indication: Colon cancer
     Dosage: 6 MILLIGRAM, QD
     Route: 058
     Dates: start: 20220129
  3. FLUOROURACIL [Concomitant]
     Active Substance: FLUOROURACIL
     Indication: Colon cancer
     Dosage: 688 MILLIGRAM, QD
     Route: 042
     Dates: start: 20220129
  4. FOSAPREPITANT [Concomitant]
     Active Substance: FOSAPREPITANT
     Indication: Colon cancer
     Dosage: 150 MILLIGRAM, QD
     Route: 042
     Dates: start: 20220129
  5. OXALIPLATIN [Concomitant]
     Active Substance: OXALIPLATIN
     Dosage: 146.2 MILLIGRAM, QD
     Route: 042
     Dates: start: 20220129
  6. PALONOSETRON [Concomitant]
     Active Substance: PALONOSETRON
     Dosage: 0.25 MILLIGRAM, QD
     Route: 042
     Dates: start: 20220129
  7. LEUCOVORIN CALCIUM [Concomitant]
     Active Substance: LEUCOVORIN CALCIUM
     Indication: Colon cancer
     Dosage: 688 MILLIGRAM, QD
     Route: 042
     Dates: start: 20220129
  8. DEXAMETHASONE PHOSPHATE [Concomitant]
     Active Substance: DEXAMETHASONE PHOSPHATE
     Dosage: 12 MILLIGRAM, QD
     Route: 042
     Dates: start: 20220129
  9. ACETAMINOPHEN [Concomitant]
     Active Substance: ACETAMINOPHEN
     Indication: Colon cancer
     Dosage: 500 MILLIGRAM, Q6H
     Route: 048

REACTIONS (3)
  - Neuropathy peripheral [Not Recovered/Not Resolved]
  - Asthenia [Recovering/Resolving]
  - Imaging procedure abnormal [Unknown]

NARRATIVE: CASE EVENT DATE: 20220301
